FAERS Safety Report 5483894-0 (Version None)
Quarter: 2007Q4

REPORT INFORMATION
  Report Type: 
  Country: None (occurrence: None)
  Receive Date: 20071009
  Receipt Date: 20061220
  Transmission Date: 20080405
  Serious: Yes (Death)
  Sender: FDA-Public Use
  Company Number: 6028854

PATIENT

DRUGS (3)
  1. NAPROXEN [Suspect]
     Indication: CANCER PAIN
  2. MORPHINE [Suspect]
     Indication: CANCER PAIN
     Dosage: 340 MG; ORAL
     Route: 048
  3. ACETAMINOPHEN [Suspect]
     Indication: DRUG USE FOR UNKNOWN INDICATION

REACTIONS (2)
  - DRUG INEFFECTIVE [None]
  - SOMNOLENCE [None]
